FAERS Safety Report 21822165 (Version 13)
Quarter: 2023Q4

REPORT INFORMATION
  Report Type: Report from Study
  Country: GB (occurrence: GB)
  Receive Date: 20230105
  Receipt Date: 20231121
  Transmission Date: 20240109
  Serious: Yes (Other)
  Sender: FDA-Public Use
  Company Number: GB-TAKEDA-2023TUS000116

PATIENT
  Sex: Male

DRUGS (16)
  1. HUMAN IMMUNOGLOBULIN G [Suspect]
     Active Substance: HUMAN IMMUNOGLOBULIN G
     Indication: Secondary immunodeficiency
     Dosage: UNK
     Route: 058
     Dates: start: 202211
  2. HUMAN IMMUNOGLOBULIN G [Suspect]
     Active Substance: HUMAN IMMUNOGLOBULIN G
     Dosage: UNK
     Route: 058
  3. HUMAN IMMUNOGLOBULIN G [Suspect]
     Active Substance: HUMAN IMMUNOGLOBULIN G
     Dosage: 200 MILLIGRAM
     Route: 065
     Dates: start: 20221122
  4. HUMAN IMMUNOGLOBULIN G [Suspect]
     Active Substance: HUMAN IMMUNOGLOBULIN G
     Dosage: 200 MILLIGRAM
     Route: 065
  5. HUMAN IMMUNOGLOBULIN G [Suspect]
     Active Substance: HUMAN IMMUNOGLOBULIN G
     Dosage: 200 MILLIGRAM
     Route: 065
  6. HUMAN IMMUNOGLOBULIN G [Suspect]
     Active Substance: HUMAN IMMUNOGLOBULIN G
     Dosage: UNK
     Route: 065
  7. HUMAN IMMUNOGLOBULIN G [Suspect]
     Active Substance: HUMAN IMMUNOGLOBULIN G
     Dosage: UNK
     Route: 065
  8. HUMAN IMMUNOGLOBULIN G [Suspect]
     Active Substance: HUMAN IMMUNOGLOBULIN G
     Dosage: UNK
     Route: 058
  9. HUMAN IMMUNOGLOBULIN G [Suspect]
     Active Substance: HUMAN IMMUNOGLOBULIN G
     Dosage: UNK
     Route: 058
  10. HUMAN IMMUNOGLOBULIN G [Suspect]
     Active Substance: HUMAN IMMUNOGLOBULIN G
     Dosage: UNK
     Route: 058
  11. HUMAN IMMUNOGLOBULIN G [Suspect]
     Active Substance: HUMAN IMMUNOGLOBULIN G
     Dosage: UNK
     Route: 058
  12. HUMAN IMMUNOGLOBULIN G [Suspect]
     Active Substance: HUMAN IMMUNOGLOBULIN G
     Dosage: 200 MILLIGRAM
     Route: 058
  13. HUMAN IMMUNOGLOBULIN G [Suspect]
     Active Substance: HUMAN IMMUNOGLOBULIN G
     Dosage: 200 MILLIGRAM
     Route: 058
  14. HUMAN IMMUNOGLOBULIN G [Suspect]
     Active Substance: HUMAN IMMUNOGLOBULIN G
     Dosage: 200 MILLIGRAM
     Route: 058
  15. AMOXICILLIN\CLAVULANATE POTASSIUM [Suspect]
     Active Substance: AMOXICILLIN\CLAVULANATE POTASSIUM
     Indication: Viral infection
     Dosage: UNK
     Route: 065
  16. COVID-19 VACCINE NOS [Suspect]
     Active Substance: COVID-19 VACCINE NOS
     Indication: Product used for unknown indication
     Dosage: UNK
     Route: 065
     Dates: start: 20230930

REACTIONS (23)
  - Pneumonia [Unknown]
  - Skin squamous cell carcinoma recurrent [Unknown]
  - Metastases to salivary gland [Unknown]
  - Post procedural discharge [Unknown]
  - Musculoskeletal stiffness [Unknown]
  - Gait disturbance [Unknown]
  - Neoplasm [Unknown]
  - Product leakage [Unknown]
  - Viral infection [Not Recovered/Not Resolved]
  - Skin discolouration [Unknown]
  - Scab [Unknown]
  - Drug ineffective [Unknown]
  - Body temperature increased [Recovering/Resolving]
  - Infusion site haemorrhage [Unknown]
  - Rash papular [Recovering/Resolving]
  - Infusion site discharge [Unknown]
  - Somnolence [Recovering/Resolving]
  - Erythema [Unknown]
  - Infusion site bruising [Unknown]
  - Chills [Recovering/Resolving]
  - Tremor [Recovering/Resolving]
  - Infusion site erythema [Recovered/Resolved]
  - Fatigue [Recovering/Resolving]
